FAERS Safety Report 21124677 (Version 3)
Quarter: 2022Q4

REPORT INFORMATION
  Report Type: Spontaneous
  Country: JP (occurrence: JP)
  Receive Date: 20220725
  Receipt Date: 20221028
  Transmission Date: 20230112
  Serious: Yes (Other)
  Sender: FDA-Public Use
  Company Number: JP-ONO-2021JP028678

PATIENT
  Age: 87 Year
  Sex: Female

DRUGS (6)
  1. IPILIMUMAB [Suspect]
     Active Substance: IPILIMUMAB
     Indication: Non-small cell lung cancer recurrent
     Dosage: UNK
     Route: 065
     Dates: start: 20210525, end: 20210615
  2. IPILIMUMAB [Suspect]
     Active Substance: IPILIMUMAB
     Route: 065
     Dates: start: 20210706, end: 20210922
  3. NIVOLUMAB [Suspect]
     Active Substance: NIVOLUMAB
     Indication: Non-small cell lung cancer recurrent
     Dosage: UNK
     Route: 041
     Dates: start: 20210525, end: 20210615
  4. NIVOLUMAB [Suspect]
     Active Substance: NIVOLUMAB
     Route: 041
     Dates: start: 20210706, end: 20210922
  5. CARBOPLATIN [Concomitant]
     Active Substance: CARBOPLATIN
     Indication: Non-small cell lung cancer recurrent
     Dosage: UNK
     Route: 065
     Dates: start: 20210525, end: 20210615
  6. PACLITAXEL [Concomitant]
     Active Substance: PACLITAXEL
     Indication: Non-small cell lung cancer recurrent
     Dosage: UNK
     Route: 065
     Dates: start: 20210525, end: 20210615

REACTIONS (5)
  - Meningitis aseptic [Unknown]
  - Depressed level of consciousness [Unknown]
  - Malignant neoplasm progression [Unknown]
  - Immune-mediated dermatitis [Unknown]
  - Adrenocorticotropic hormone deficiency [Unknown]
